FAERS Safety Report 22518787 (Version 1)
Quarter: 2023Q2

REPORT INFORMATION
  Report Type: Spontaneous
  Country: US (occurrence: US)
  Receive Date: 20230605
  Receipt Date: 20230605
  Transmission Date: 20230721
  Serious: Yes (Other)
  Sender: FDA-Public Use
  Company Number: US-EyePoint Pharmaceuticals, Inc.-US-EYP-23-00187

PATIENT
  Age: 75 Year
  Sex: Male

DRUGS (5)
  1. DEXYCU [Suspect]
     Active Substance: DEXAMETHASONE
     Indication: Post procedural inflammation
     Dosage: LEFT EYE/OS; ADMINISTERED UNDER THE IRIS
     Route: 031
  2. DEXYCU [Suspect]
     Active Substance: DEXAMETHASONE
  3. UNSPECIFIED INGREDIENT [Concomitant]
     Active Substance: UNSPECIFIED INGREDIENT
     Indication: Post procedural inflammation
     Dosage: RIGHT EYE/OD
     Route: 047
  4. PREDNISOLONE ACETATE [Concomitant]
     Active Substance: PREDNISOLONE ACETATE
     Indication: Post procedural inflammation
     Dosage: RIGHT EYE/OD
     Route: 047
  5. PREDNISOLONE ACETATE [Concomitant]
     Active Substance: PREDNISOLONE ACETATE
     Dosage: RIGHT EYE/OD; WEEKLY TAPER BY ONE DROP OVER 4 WEEKS
     Route: 047

REACTIONS (1)
  - Iris atrophy [Unknown]
